FAERS Safety Report 12705821 (Version 1)
Quarter: 2016Q3

REPORT INFORMATION
  Report Type: Spontaneous
  Country: JP (occurrence: JP)
  Receive Date: 20160901
  Receipt Date: 20160901
  Transmission Date: 20161109
  Serious: Yes (Hospitalization, Other)
  Sender: FDA-Public Use
  Company Number: JP-GLENMARK PHARMACEUTICALS INC, USA.-2016GMK023600

PATIENT
  Age: 53 Year
  Sex: Female

DRUGS (19)
  1. OLANZAPINE. [Interacting]
     Active Substance: OLANZAPINE
     Dosage: 5 - 10 MG
     Route: 065
     Dates: start: 2013
  2. LEVODOPA [Interacting]
     Active Substance: LEVODOPA
     Dosage: 200-300 MG, UNK
     Route: 065
     Dates: start: 2013
  3. CLONAZEPAM. [Concomitant]
     Active Substance: CLONAZEPAM
     Indication: PRODUCT USED FOR UNKNOWN INDICATION
     Dosage: 1.5 MG, UNK
     Route: 065
  4. ROPINIROLE. [Suspect]
     Active Substance: ROPINIROLE
     Dosage: 6 MG, UNK
     Route: 065
     Dates: start: 201411
  5. LEVODOPA [Interacting]
     Active Substance: LEVODOPA
     Indication: DEMENTIA WITH LEWY BODIES
     Dosage: 600 MG, UNK
     Route: 065
  6. OLANZAPINE. [Interacting]
     Active Substance: OLANZAPINE
     Indication: PRODUCT USED FOR UNKNOWN INDICATION
     Dosage: 5-10 MG
     Route: 065
  7. BROTIZOLAM [Concomitant]
     Active Substance: BROTIZOLAM
     Indication: PRODUCT USED FOR UNKNOWN INDICATION
     Dosage: 0.25 MG, UNK
     Route: 065
  8. BIPERIDEN [Concomitant]
     Active Substance: BIPERIDEN
     Dosage: 3 MG, UNK
     Route: 065
  9. PEROSPIRONE HYDROCHLORIDE [Concomitant]
     Active Substance: PEROSPIRONE HYDROCHLORIDE
     Indication: PRODUCT USED FOR UNKNOWN INDICATION
     Dosage: 8-16 MG, UNK
     Route: 065
     Dates: start: 2013
  10. ROTIGOTINE [Suspect]
     Active Substance: ROTIGOTINE
     Indication: DEMENTIA WITH LEWY BODIES
     Dosage: UNK
     Route: 065
     Dates: start: 2014
  11. TIAPRIDE HYDROCHLORIDE [Concomitant]
     Active Substance: TIAPRIDE HYDROCHLORIDE
     Indication: PRODUCT USED FOR UNKNOWN INDICATION
     Dosage: 50-150 MG, UNK
     Route: 065
     Dates: start: 2013
  12. ROPINIROLE. [Suspect]
     Active Substance: ROPINIROLE
     Dosage: 2 MG, UNK
     Route: 065
  13. RISPERIDONE. [Suspect]
     Active Substance: RISPERIDONE
     Indication: PRODUCT USED FOR UNKNOWN INDICATION
     Dosage: 2 MG, UNK
     Route: 065
  14. BIPERIDEN [Concomitant]
     Active Substance: BIPERIDEN
     Indication: PARKINSON^S DISEASE
     Dosage: 2 MG, UNK
     Route: 065
  15. LEVODOPA [Interacting]
     Active Substance: LEVODOPA
     Dosage: 100 MG, UNK
     Route: 065
     Dates: start: 201309
  16. BIPERIDEN [Concomitant]
     Active Substance: BIPERIDEN
     Dosage: 6 MG, UNK
     Route: 065
     Dates: start: 2013
  17. ROPINIROLE. [Suspect]
     Active Substance: ROPINIROLE
     Indication: DEMENTIA WITH LEWY BODIES
     Dosage: 1 MG, UNK
     Route: 065
     Dates: start: 201411
  18. LEVODOPA [Interacting]
     Active Substance: LEVODOPA
     Dosage: 600 MG, UNK
     Route: 065
     Dates: start: 201405
  19. QUETIAPINE FUMARATE. [Suspect]
     Active Substance: QUETIAPINE FUMARATE
     Indication: PRODUCT USED FOR UNKNOWN INDICATION
     Dosage: 75 MG, UNK
     Route: 065

REACTIONS (5)
  - Oromandibular dystonia [Recovering/Resolving]
  - Dyskinesia [Recovering/Resolving]
  - Drug hypersensitivity [Recovering/Resolving]
  - Condition aggravated [Recovering/Resolving]
  - Altered state of consciousness [Recovering/Resolving]
